FAERS Safety Report 26118852 (Version 1)
Quarter: 2025Q4

REPORT INFORMATION
  Report Type: Spontaneous
  Country: US (occurrence: US)
  Receive Date: 20251203
  Receipt Date: 20251203
  Transmission Date: 20260118
  Serious: Yes (Hospitalization, Other)
  Sender: REGCON HOLDINGS LLC
  Company Number: US-REGON-REG-2025-US-LIT-00004

PATIENT
  Age: 69 Year
  Sex: Male

DRUGS (1)
  1. APIXABAN [Suspect]
     Active Substance: APIXABAN
     Indication: Atrial fibrillation
     Route: 065

REACTIONS (2)
  - Spontaneous splenic rupture [Recovered/Resolved]
  - Splenic haemorrhage [Recovered/Resolved]
